FAERS Safety Report 16536772 (Version 1)
Quarter: 2019Q3

REPORT INFORMATION
  Report Type: Spontaneous
  Country: US (occurrence: US)
  Receive Date: 20190706
  Receipt Date: 20190706
  Transmission Date: 20191004
  Serious: No
  Sender: FDA-Public Use
  Company Number: US-TEVA-2019-US-1069639

PATIENT
  Sex: Female

DRUGS (1)
  1. DULOXETINE ACTAVIS [Suspect]
     Active Substance: DULOXETINE
     Indication: FIBROMYALGIA
     Route: 065
     Dates: start: 20190622

REACTIONS (3)
  - Somnolence [Unknown]
  - Product substitution issue [Unknown]
  - Irritability [Unknown]

NARRATIVE: CASE EVENT DATE: 20190622
